FAERS Safety Report 6994451-9 (Version None)
Quarter: 2010Q3

REPORT INFORMATION
  Report Type: 
  Country: None (occurrence: None)
  Receive Date: 20100917
  Receipt Date: 20100906
  Transmission Date: 20110219
  Serious: Yes (Other)
  Sender: FDA-Public Use
  Company Number: JP-JNJFOC-20091003552

PATIENT
  Sex: Female
  Weight: 59 kg

DRUGS (18)
  1. DOXORUBICIN HCL [Suspect]
     Indication: OVARIAN CANCER RECURRENT
     Route: 042
  2. DOXORUBICIN HCL [Suspect]
     Route: 042
  3. DOXORUBICIN HCL [Suspect]
     Route: 042
  4. DOXORUBICIN HCL [Suspect]
     Route: 042
  5. DOXORUBICIN HCL [Suspect]
     Route: 042
  6. DOXORUBICIN HCL [Suspect]
     Route: 042
  7. DOXORUBICIN HCL [Suspect]
     Route: 042
  8. DOXORUBICIN HCL [Suspect]
     Route: 042
  9. DOXORUBICIN HCL [Suspect]
     Route: 042
  10. DOXORUBICIN HCL [Suspect]
     Route: 042
  11. NEUPOGEN [Suspect]
     Indication: NEUTROPHIL COUNT DECREASED
     Route: 050
     Dates: start: 20090717, end: 20090811
  12. NEUPOGEN [Suspect]
     Route: 050
     Dates: start: 20090717, end: 20090811
  13. AZUNOL [Concomitant]
     Indication: PROPHYLAXIS
     Route: 049
  14. DECADRON [Concomitant]
     Indication: PROPHYLAXIS
     Route: 042
  15. PYDOXAL [Concomitant]
     Indication: PROPHYLAXIS
     Route: 048
  16. ZOFRAN [Concomitant]
     Indication: PROPHYLAXIS
     Route: 048
  17. LIPITOR [Concomitant]
     Route: 048
  18. MAGNESIUM OXIDE [Concomitant]
     Route: 048

REACTIONS (1)
  - SUPRAVENTRICULAR TACHYCARDIA [None]
